FAERS Safety Report 9843654 (Version 1)
Quarter: 2013Q4

REPORT INFORMATION
  Report Type: Spontaneous
  Country: US (occurrence: None)
  Receive Date: 20131223
  Receipt Date: 20131223
  Transmission Date: 20140711
  Serious: No
  Sender: FDA-Public Use
  Company Number: 220002LEO

PATIENT
  Sex: Female

DRUGS (1)
  1. PICATO 0.015 %, GEL [Suspect]
     Indication: PRECANCEROUS SKIN LESION
     Route: 061

REACTIONS (1)
  - Acne [None]
